FAERS Safety Report 14706360 (Version 1)
Quarter: 2018Q2

REPORT INFORMATION
  Report Type: Spontaneous
  Country: GB (occurrence: GB)
  Receive Date: 20180402
  Receipt Date: 20180402
  Transmission Date: 20180711
  Serious: Yes (Other)
  Sender: FDA-Public Use
  Company Number: GB-009507513-1804GBR000290

PATIENT
  Age: 88 Year
  Sex: Female

DRUGS (2)
  1. CUBICIN [Suspect]
     Active Substance: DAPTOMYCIN
     Indication: URINARY TRACT INFECTION
     Dosage: 350 MG, UNK
     Dates: start: 20180326
  2. CUBICIN [Suspect]
     Active Substance: DAPTOMYCIN
     Dosage: 1600 MG, UNK
     Dates: start: 20180327

REACTIONS (5)
  - Glomerular filtration rate abnormal [Unknown]
  - Accidental overdose [Unknown]
  - Drug administration error [Unknown]
  - Blood creatine phosphokinase abnormal [Unknown]
  - Product use in unapproved indication [Unknown]

NARRATIVE: CASE EVENT DATE: 201803
